FAERS Safety Report 5485550-1 (Version None)
Quarter: 2007Q4

REPORT INFORMATION
  Report Type: 
  Country: None (occurrence: None)
  Receive Date: 20071011
  Receipt Date: 20071011
  Transmission Date: 20080405
  Serious: Yes (Hospitalization)
  Sender: FDA-Public Use
  Company Number: None

PATIENT
  Sex: Female
  Weight: 95.4 kg

DRUGS (3)
  1. FLUOROURACIL [Suspect]
     Dosage: 7800 MG
  2. CISPLATIN [Suspect]
     Dosage: 146 MG
  3. ERBITUX [Suspect]
     Dosage: 488 MG

REACTIONS (11)
  - BLOOD PHOSPHORUS ABNORMAL [None]
  - DEEP VEIN THROMBOSIS [None]
  - DIARRHOEA [None]
  - FATIGUE [None]
  - HAEMOGLOBIN ABNORMAL [None]
  - PAINFUL DEFAECATION [None]
  - PERINEAL LACERATION [None]
  - PLATELET COUNT ABNORMAL [None]
  - RADIATION SKIN INJURY [None]
  - SKIN EXFOLIATION [None]
  - WHITE BLOOD CELL COUNT ABNORMAL [None]
